FAERS Safety Report 17675964 (Version 1)
Quarter: 2020Q2

REPORT INFORMATION
  Report Type: Spontaneous
  Country: US (occurrence: US)
  Receive Date: 20200415
  Receipt Date: 20200415
  Transmission Date: 20200714
  Serious: Yes (Other)
  Sender: FDA-Public Use
  Company Number: None

PATIENT
  Age: 75 Year
  Sex: Male
  Weight: 77 kg

DRUGS (2)
  1. HYDROCHLOROTHIAZIDE (HYDROCHLOROTHIAZIDE 25MG TAB) [Suspect]
     Active Substance: HYDROCHLOROTHIAZIDE
     Indication: HYPERTENSION
     Route: 048
     Dates: start: 20030601, end: 20190728
  2. AMLODIPINE (AMLODIPINE BESYLATE 5MG TAB) [Suspect]
     Active Substance: AMLODIPINE BESYLATE
     Indication: HYPERTENSION
     Route: 048
     Dates: start: 20090105

REACTIONS (10)
  - Urticaria [None]
  - Facial pain [None]
  - Hypersensitivity [None]
  - Rash [None]
  - Dysphagia [None]
  - Dysuria [None]
  - Eye pain [None]
  - Swelling [None]
  - Constipation [None]
  - Pruritus [None]

NARRATIVE: CASE EVENT DATE: 20200117
